FAERS Safety Report 13813394 (Version 1)
Quarter: 2017Q3

REPORT INFORMATION
  Report Type: Other
  Country: US (occurrence: US)
  Receive Date: 20170730
  Receipt Date: 20170730
  Transmission Date: 20171127
  Serious: Yes (Death, Disabling, Other)
  Sender: FDA-Public Use
  Company Number: US-DEXPHARM-20170516

PATIENT
  Age: 60 Year
  Sex: Female

DRUGS (1)
  1. CHLORHEXIDINE [Suspect]
     Active Substance: CHLORHEXIDINE
     Indication: ANGIOGRAM

REACTIONS (5)
  - Chemical burn [Fatal]
  - Organ failure [Fatal]
  - Wrong drug administered [Fatal]
  - Injection site injury [Fatal]
  - Cerebrovascular accident [Fatal]
